FAERS Safety Report 10169259 (Version 1)
Quarter: 2014Q2

REPORT INFORMATION
  Report Type: Spontaneous
  Country: GB (occurrence: GB)
  Receive Date: 20140513
  Receipt Date: 20140513
  Transmission Date: 20141212
  Serious: Yes (Other)
  Sender: FDA-Public Use
  Company Number: GB-PFIZER INC-2014129111

PATIENT
  Age: 53 Year
  Sex: Male
  Weight: 90.26 kg

DRUGS (8)
  1. CHAMPIX [Suspect]
     Indication: SMOKING CESSATION THERAPY
     Dosage: 0.5 MG, UNK
     Route: 048
     Dates: start: 20140418, end: 2014
  2. CHAMPIX [Suspect]
     Dosage: 1 MG, 2X/DAY
     Route: 048
     Dates: start: 2014, end: 20140427
  3. ASPIRIN [Concomitant]
     Dosage: UNK
  4. CIALIS [Concomitant]
     Dosage: UNK
  5. ESCITALOPRAM [Concomitant]
     Dosage: UNK
  6. EZETIMIBE [Concomitant]
     Dosage: UNK
  7. OMACOR [Concomitant]
     Dosage: UNK
  8. ROSUVASTATIN [Concomitant]
     Dosage: UNK

REACTIONS (6)
  - Headache [Recovered/Resolved]
  - Nausea [Recovered/Resolved]
  - Agitated depression [Recovered/Resolved with Sequelae]
  - Dizziness [Recovered/Resolved]
  - Somnolence [Recovered/Resolved with Sequelae]
  - Rash [Not Recovered/Not Resolved]
